FAERS Safety Report 10872699 (Version 2)
Quarter: 2015Q1

REPORT INFORMATION
  Report Type: Spontaneous
  Country: US (occurrence: US)
  Receive Date: 20150227
  Receipt Date: 20150303
  Transmission Date: 20150721
  Serious: Yes (Other)
  Sender: FDA-Public Use
  Company Number: US-LEO PHARMA-232718

PATIENT
  Sex: Female

DRUGS (1)
  1. PICATO [Suspect]
     Active Substance: INGENOL MEBUTATE
     Indication: ACTINIC KERATOSIS
     Dosage: ONLY COMPLETED 2 APPLICATIONS
     Route: 061
     Dates: start: 201501

REACTIONS (10)
  - Hypersensitivity [Not Recovered/Not Resolved]
  - Oral pain [Unknown]
  - Dysphagia [Unknown]
  - Oropharyngeal pain [Not Recovered/Not Resolved]
  - Insomnia [Unknown]
  - Swelling face [Not Recovered/Not Resolved]
  - Incorrect drug administration duration [Unknown]
  - Pain in jaw [Unknown]
  - Drug administration error [Unknown]
  - Local swelling [Unknown]
